FAERS Safety Report 21151543 (Version 1)
Quarter: 2022Q3

REPORT INFORMATION
  Report Type: Spontaneous
  Country: CA (occurrence: CA)
  Receive Date: 20220730
  Receipt Date: 20220730
  Transmission Date: 20221026
  Serious: Yes (Hospitalization)
  Sender: FDA-Public Use
  Company Number: None

PATIENT
  Age: 59 Year
  Sex: Male

DRUGS (3)
  1. METHOTREXATE [Interacting]
     Active Substance: METHOTREXATE
     Indication: Burkitt^s lymphoma stage IV
     Route: 037
  2. PIPERACILLIN AND TAZOBACTAM [Interacting]
     Active Substance: PIPERACILLIN SODIUM\TAZOBACTAM SODIUM
     Indication: Product used for unknown indication
  3. METHOTREXATE [Interacting]
     Active Substance: METHOTREXATE
     Indication: Burkitt^s lymphoma stage IV

REACTIONS (3)
  - Blood creatinine increased [Not Recovered/Not Resolved]
  - Drug level increased [Not Recovered/Not Resolved]
  - Labelled drug-drug interaction issue [Unknown]
